FAERS Safety Report 13897585 (Version 3)
Quarter: 2017Q3

REPORT INFORMATION
  Report Type: Spontaneous
  Country: FR (occurrence: FR)
  Receive Date: 20170823
  Receipt Date: 20170915
  Transmission Date: 20171127
  Serious: Yes (Hospitalization)
  Sender: FDA-Public Use
  Company Number: FR-PFIZER INC-2017357807

PATIENT
  Age: 94 Year
  Sex: Male

DRUGS (5)
  1. KARDEGIC [Concomitant]
     Active Substance: ASPIRIN LYSINE
     Dosage: 75 MG, 1X/DAY
     Route: 048
  2. AUGMENTIN [Suspect]
     Active Substance: AMOXICILLIN\CLAVULANATE POTASSIUM
     Indication: ERYSIPELAS
     Dosage: UNK
     Route: 048
     Dates: start: 20170406, end: 20170407
  3. EFFEXOR [Concomitant]
     Active Substance: VENLAFAXINE HYDROCHLORIDE
     Dosage: 75 MG, 1X/DAY
     Route: 048
  4. MICARDIS [Concomitant]
     Active Substance: TELMISARTAN
     Dosage: 40 MG, 1X/DAY
     Route: 048
  5. VERATRAN [Concomitant]
     Active Substance: CLOTIAZEPAM
     Dosage: 5 MG, 1X/DAY
     Route: 048

REACTIONS (2)
  - Oedema peripheral [Recovering/Resolving]
  - Angioedema [Recovered/Resolved]

NARRATIVE: CASE EVENT DATE: 20170406
